FAERS Safety Report 4620706-9 (Version None)
Quarter: 2005Q1

REPORT INFORMATION
  Report Type: 
  Country: None (occurrence: None)
  Receive Date: 20050325
  Receipt Date: 20050312
  Transmission Date: 20050727
  Serious: Yes (Other)
  Sender: FDA-Public Use
  Company Number: 2005044389

PATIENT
  Age: 54 Year
  Sex: Female

DRUGS (2)
  1. NEURONTIN [Suspect]
     Indication: MIGRAINE
     Dosage: 1200 MG, ORAL
     Route: 048
     Dates: start: 19990101
  2. NEURONTIN [Suspect]
     Indication: PAIN
     Dosage: 1200 MG, ORAL
     Route: 048
     Dates: start: 19990101

REACTIONS (5)
  - DRUG INEFFECTIVE [None]
  - FATIGUE [None]
  - FEELING ABNORMAL [None]
  - HYPERSOMNIA [None]
  - ROAD TRAFFIC ACCIDENT [None]
